FAERS Safety Report 5372651-1 (Version None)
Quarter: 2007Q2

REPORT INFORMATION
  Report Type: 
  Country: None (occurrence: None)
  Receive Date: 20070626
  Receipt Date: 20070619
  Transmission Date: 20071010
  Serious: Yes (Death)
  Sender: FDA-Public Use
  Company Number: 167-C5013-07051586

PATIENT
  Age: 68 Year
  Sex: Male

DRUGS (7)
  1. CC-5013 (LENALIDOMIDE) (CAPSULES) [Suspect]
     Indication: MULTIPLE MYELOMA
     Dosage: 25 MG, ORAL
     Route: 048
     Dates: start: 20060710, end: 20060831
  2. DEXAMETHASONE TAB [Suspect]
     Indication: MULTIPLE MYELOMA
     Dosage: 20 MG, ALT DAY
     Dates: start: 20060701, end: 20060801
  3. ACYCLOVIR [Concomitant]
  4. SEPTRAN (BACTRIM) [Concomitant]
  5. LANSOPRAZOLE [Concomitant]
  6. PENICILLIN V [Concomitant]
  7. FLUCONAZOLE [Concomitant]

REACTIONS (18)
  - ABDOMINAL PAIN [None]
  - ASTHENIA [None]
  - BLOOD CULTURE POSITIVE [None]
  - BRONCHOPNEUMONIA [None]
  - CONSTIPATION [None]
  - GENERAL PHYSICAL HEALTH DETERIORATION [None]
  - HAEMOGLOBIN DECREASED [None]
  - HYPOTENSION [None]
  - HYPOXIA [None]
  - LARGE INTESTINAL OBSTRUCTION [None]
  - MALAISE [None]
  - OLIGURIA [None]
  - PERITONITIS [None]
  - PLATELET COUNT DECREASED [None]
  - PSEUDOMONAS INFECTION [None]
  - PYREXIA [None]
  - SPUTUM CULTURE POSITIVE [None]
  - SPUTUM PURULENT [None]
